FAERS Safety Report 16900255 (Version 2)
Quarter: 2019Q4

REPORT INFORMATION
  Report Type: Spontaneous
  Country: US (occurrence: US)
  Receive Date: 20191009
  Receipt Date: 20191011
  Transmission Date: 20200122
  Serious: Yes (Hospitalization)
  Sender: FDA-Public Use
  Company Number: US-TEVA-2019-US-1118028

PATIENT
  Age: 70 Year
  Sex: Female

DRUGS (2)
  1. REAL COUMADIN [Concomitant]
  2. VALSARTAN. [Suspect]
     Active Substance: VALSARTAN
     Route: 065

REACTIONS (2)
  - Urticaria [Unknown]
  - Dyspnoea [Unknown]
